FAERS Safety Report 25570884 (Version 1)
Quarter: 2025Q3

REPORT INFORMATION
  Report Type: Spontaneous
  Country: CH (occurrence: CH)
  Receive Date: 20250717
  Receipt Date: 20250717
  Transmission Date: 20251021
  Serious: Yes (Other)
  Sender: ABBVIE
  Company Number: CH-ABBVIE-6367914

PATIENT
  Age: 25 Year
  Sex: Male

DRUGS (2)
  1. HUMIRA [Suspect]
     Active Substance: ADALIMUMAB
     Indication: Crohn^s disease
     Route: 058
  2. SKYRIZI [Suspect]
     Active Substance: RISANKIZUMAB-RZAA
     Indication: Crohn^s disease
     Route: 042
     Dates: start: 20250709

REACTIONS (9)
  - Cholangitis sclerosing [Not Recovered/Not Resolved]
  - Rash papular [Unknown]
  - Bone giant cell tumour [Unknown]
  - Colitis [Unknown]
  - Drug ineffective [Unknown]
  - Post procedural complication [Unknown]
  - Multiple fractures [Unknown]
  - Urticaria chronic [Not Recovered/Not Resolved]
  - Pruritus [Unknown]

NARRATIVE: CASE EVENT DATE: 20250101
